FAERS Safety Report 18588330 (Version 1)
Quarter: 2020Q4

REPORT INFORMATION
  Report Type: Spontaneous
  Country: US (occurrence: US)
  Receive Date: 20201207
  Receipt Date: 20201207
  Transmission Date: 20210114
  Serious: No
  Sender: FDA-Public Use
  Company Number: US-JUBILANT CADISTA PHARMACEUTICALS-2019JUB00430

PATIENT
  Age: 61 Year
  Sex: Female
  Weight: 52.15 kg

DRUGS (5)
  1. METHYLPREDNISOLONE. [Suspect]
     Active Substance: METHYLPREDNISOLONE
     Indication: PAIN
     Dosage: FOLLOW THE LABELED DOSE PACK DIRECTIONS
     Route: 048
     Dates: start: 20191110
  2. METHYLPREDNISOLONE. [Suspect]
     Active Substance: METHYLPREDNISOLONE
     Indication: SWELLING
  3. ZOCOR [Concomitant]
     Active Substance: SIMVASTATIN
  4. PROGESTERONE. [Concomitant]
     Active Substance: PROGESTERONE
  5. UNSPECIFIED ESTROGEN PRODUCT [Concomitant]
     Active Substance: UNSPECIFIED INGREDIENT

REACTIONS (3)
  - Flatulence [Recovering/Resolving]
  - Gluten sensitivity [Recovering/Resolving]
  - Abdominal pain upper [Recovering/Resolving]

NARRATIVE: CASE EVENT DATE: 20191110
